FAERS Safety Report 8349581-6 (Version None)
Quarter: 2012Q2

REPORT INFORMATION
  Report Type: 
  Country: None (occurrence: None)
  Receive Date: 20120510
  Receipt Date: 20120502
  Transmission Date: 20120825
  Serious: Yes (Other)
  Sender: FDA-Public Use
  Company Number: PHHY2012SE037550

PATIENT
  Sex: Male

DRUGS (4)
  1. CARBAMAZEPINE [Concomitant]
  2. LEVOTHYROXINE SODIUM [Concomitant]
  3. DESLORATADINE [Concomitant]
     Dosage: UNK UKN, UNK
  4. EXJADE [Suspect]
     Indication: IRON OVERLOAD
     Dosage: UNK UKN, UNK
     Dates: start: 20080101

REACTIONS (2)
  - FRACTURE [None]
  - OSTEOPOROSIS [None]
